FAERS Safety Report 8373075-5 (Version None)
Quarter: 2012Q2

REPORT INFORMATION
  Report Type: 
  Country: None (occurrence: None)
  Receive Date: 20120521
  Receipt Date: 20120514
  Transmission Date: 20120825
  Serious: Yes (Other)
  Sender: FDA-Public Use
  Company Number: PHHY2012MX042188

PATIENT
  Sex: Female

DRUGS (2)
  1. FORADIL [Suspect]
     Indication: ASTHMA
     Dosage: 12 UG, EVERY 12 HRS
     Dates: start: 20120203
  2. COMBIVENT [Concomitant]
     Dosage: 1 DF, Q8H
     Dates: start: 20120203

REACTIONS (7)
  - SOMNOLENCE [None]
  - ASTHENIA [None]
  - CYANOSIS [None]
  - ASTHMATIC CRISIS [None]
  - SYNCOPE [None]
  - DYSPNOEA [None]
  - TACHYCARDIA [None]
